APPROVED DRUG PRODUCT: TRALEMENT
Active Ingredient: CUPRIC SULFATE; MANGANESE SULFATE; SELENIOUS ACID; ZINC SULFATE
Strength: EQ 0.3MG COPPER/ML;EQ 55MCG BASE/ML;EQ 60MCG SELENIUM/ML;EQ 3MG BASE/ML (5ML)
Dosage Form/Route: SOLUTION;INTRAVENOUS
Application: N209376 | Product #002
Applicant: AMERICAN REGENT INC
Approved: Dec 2, 2020 | RLD: Yes | RS: Yes | Type: RX

PATENTS:
Patent 12150957 | Expires: Jul 1, 2041
Patent 12150956 | Expires: Jul 1, 2041
Patent 11975022 | Expires: Jul 1, 2041
Patent 11998565 | Expires: Jul 1, 2041
Patent 11786548 | Expires: Jul 1, 2041